FAERS Safety Report 10495397 (Version 1)
Quarter: 2014Q4

REPORT INFORMATION
  Report Type: Spontaneous
  Country: US (occurrence: None)
  Receive Date: 20141001
  Receipt Date: 20141001
  Transmission Date: 20150528
  Serious: Yes (Other)
  Sender: FDA-Public Use
  Company Number: CIO14064816

PATIENT

DRUGS (1)
  1. CREST 3D WHITE [Suspect]
     Active Substance: SODIUM FLUORIDE
     Dosage: UKNOWN, INTRAORAL
     Route: 048
     Dates: start: 2012

REACTIONS (3)
  - Gingivitis [None]
  - Tooth extraction [None]
  - Foreign body reaction [None]
